FAERS Safety Report 6741815-4 (Version None)
Quarter: 2010Q2

REPORT INFORMATION
  Report Type: 
  Country: None (occurrence: None)
  Receive Date: 20100526
  Receipt Date: 20100512
  Transmission Date: 20101027
  Serious: Yes (Other)
  Sender: FDA-Public Use
  Company Number: DE-ROCHE-704808

PATIENT
  Sex: Female

DRUGS (1)
  1. BONIVA [Suspect]
     Indication: DRUG USE FOR UNKNOWN INDICATION
     Route: 042

REACTIONS (5)
  - DRUG ADMINISTRATION ERROR [None]
  - INJECTION SITE PAIN [None]
  - INJECTION SITE SWELLING [None]
  - NERVE INJURY [None]
  - VENOUS INJURY [None]
